FAERS Safety Report 9055652 (Version 2)
Quarter: 2013Q1

REPORT INFORMATION
  Report Type: Report from Study
  Country: JP (occurrence: JP)
  Receive Date: 20130206
  Receipt Date: 20130329
  Transmission Date: 20140127
  Serious: Yes (Death)
  Sender: FDA-Public Use
  Company Number: JP-009507513-1302JPN001498

PATIENT
  Age: 60 Year
  Sex: Female
  Weight: 49 kg

DRUGS (11)
  1. TEMOZOLOMIDE [Suspect]
     Indication: ANAPLASTIC ASTROCYTOMA
     Dosage: 150.00 MG/M2, UNK
     Route: 041
     Dates: start: 20120220, end: 20120224
  2. TEMOZOLOMIDE [Suspect]
     Dosage: 150.00 MG/M2, UNK
     Route: 041
     Dates: start: 20120116, end: 20120120
  3. TEMODAL [Suspect]
     Indication: ANAPLASTIC ASTROCYTOMA
     Dosage: DAILY DOSAGE UNKNOWN
     Route: 048
     Dates: start: 20101203, end: 20110111
  4. EXCEGRAN [Suspect]
     Dosage: DAILY DOSAGE UNKNOWN
     Route: 048
  5. BACTRAMIN [Suspect]
     Indication: ANTIFUNGAL PROPHYLAXIS
     Dosage: DAILY DOSAGE UNKNOWN
     Route: 042
     Dates: start: 20120116, end: 20120224
  6. PREDONINE [Concomitant]
     Dosage: DAILY DOSAGE UNKNOWN
     Route: 042
  7. GASPORT D [Concomitant]
     Dosage: DAILY DOSAGE UNKNOWN
     Route: 042
  8. GRANISETRON [Concomitant]
     Indication: PROPHYLAXIS
     Dosage: DAILY DOSAGE UNKNOWN
     Route: 042
     Dates: start: 20120116, end: 20120224
  9. GLYCEREB [Concomitant]
     Dosage: DAILY DOSAGE UNKNOWN
     Route: 042
  10. BISOLVON [Concomitant]
     Dosage: UNK
     Route: 042
     Dates: start: 20120306
  11. LAXOBERON [Concomitant]
     Dosage: DAILY DOSAGE UNKNOWN (FORMULATION POR)
     Route: 048

REACTIONS (5)
  - Disease progression [Fatal]
  - Sputum retention [Not Recovered/Not Resolved]
  - Constipation [Not Recovered/Not Resolved]
  - Lymphocyte count decreased [Recovered/Resolved]
  - Platelet count decreased [Not Recovered/Not Resolved]
